FAERS Safety Report 9117205 (Version 3)
Quarter: 2013Q1

REPORT INFORMATION
  Report Type: Spontaneous
  Country: JP (occurrence: JP)
  Receive Date: 20130208
  Receipt Date: 20130313
  Transmission Date: 20140127
  Serious: Yes (Hospitalization)
  Sender: FDA-Public Use
  Company Number: JP-UCBSA-077824

PATIENT
  Age: 15 Year
  Sex: Male
  Weight: 45 kg

DRUGS (13)
  1. E KEPPRA [Suspect]
     Indication: EPILEPSY
     Route: 048
     Dates: start: 20120829, end: 20120911
  2. E KEPPRA [Suspect]
     Indication: EPILEPSY
     Dosage: DAILY DOSE: 750MG/DAY
     Route: 048
     Dates: start: 20120912, end: 20120925
  3. E KEPPRA [Suspect]
     Indication: EPILEPSY
     Dosage: DAILY DOSE:1000MG/DAY
     Route: 048
     Dates: start: 20120926, end: 20121016
  4. E KEPPRA [Suspect]
     Indication: EPILEPSY
     Dosage: DAILY DOSE: 1125MG/DAY
     Route: 048
     Dates: start: 20121017, end: 20121030
  5. E KEPPRA [Suspect]
     Indication: EPILEPSY
     Dosage: DAILY DOSE: 1250MG
     Route: 048
     Dates: start: 20121031, end: 20121113
  6. E KEPPRA [Suspect]
     Indication: EPILEPSY
     Dosage: DAILY DOSE: 1500MG/DAY
     Route: 048
     Dates: start: 20121114, end: 20121127
  7. E KEPPRA [Suspect]
     Indication: EPILEPSY
     Dosage: DAILY DOSE: 1750MG/DAY
     Route: 048
     Dates: start: 20121128, end: 20121211
  8. E KEPPRA [Suspect]
     Indication: EPILEPSY
     Dosage: DAILY DOSE: 2000MG/DAY
     Route: 048
     Dates: start: 20121212, end: 20121225
  9. E KEPPRA [Suspect]
     Indication: EPILEPSY
     Route: 048
     Dates: start: 20121226, end: 20130108
  10. E KEPPRA [Suspect]
     Indication: EPILEPSY
     Route: 048
     Dates: start: 20130109, end: 20130121
  11. TOPINA [Concomitant]
     Indication: CONVULSION
     Dosage: DAILY DOSE: 235MG
     Route: 048
  12. SELENICA-R [Concomitant]
     Dosage: DAILY DOSE:430MG
     Route: 048
     Dates: end: 20130114
  13. SELENICA-R [Concomitant]
     Dosage: DAILY DOSE: 430MG
     Route: 048
     Dates: start: 20130207

REACTIONS (5)
  - Platelet count decreased [Recovered/Resolved]
  - Weight decreased [Recovered/Resolved]
  - Decreased appetite [Recovered/Resolved]
  - Stomatitis [Recovered/Resolved]
  - Somnolence [Recovered/Resolved]
